FAERS Safety Report 14683519 (Version 2)
Quarter: 2018Q2

REPORT INFORMATION
  Report Type: Spontaneous
  Country: US (occurrence: US)
  Receive Date: 20180327
  Receipt Date: 20180522
  Transmission Date: 20180711
  Serious: No
  Sender: FDA-Public Use
  Company Number: US-PFIZER INC-2018126536

PATIENT
  Age: 57 Year
  Sex: Male
  Weight: 77.98 kg

DRUGS (4)
  1. HYDROCORTISONE. [Suspect]
     Active Substance: HYDROCORTISONE
     Indication: PAIN
  2. HYDROCORTISONE. [Suspect]
     Active Substance: HYDROCORTISONE
     Indication: ADRENAL DISORDER
     Dosage: 10 MG, DAILY (AND ALSO AS NEEDED)
     Route: 048
  3. HYDROCORTISONE. [Suspect]
     Active Substance: HYDROCORTISONE
     Indication: STRESS
  4. HYDROCORTISONE. [Suspect]
     Active Substance: HYDROCORTISONE
     Indication: INJURY

REACTIONS (2)
  - Sleep disorder [Unknown]
  - Condition aggravated [Unknown]
